FAERS Safety Report 5958737-9 (Version None)
Quarter: 2008Q4

REPORT INFORMATION
  Report Type: 
  Country: None (occurrence: None)
  Receive Date: 20081119
  Receipt Date: 20081110
  Transmission Date: 20090506
  Serious: No
  Sender: FDA-Public Use
  Company Number: US-B.I. PHARMACEUTICALS,INC./RIDGEFIELD-2008-BP-16971BP

PATIENT
  Age: 83 Year
  Sex: Female

DRUGS (8)
  1. MIRAPEX [Suspect]
     Indication: RESTLESS LEGS SYNDROME
     Dosage: 1.5MG
     Route: 048
     Dates: start: 20081106, end: 20081107
  2. DIGOXIN [Concomitant]
     Indication: ANGINA PECTORIS
     Dosage: .25MG
     Route: 048
  3. METHYLDOPA [Concomitant]
     Indication: HYPERTENSION
     Dosage: 250MG
     Route: 048
  4. AGGRENOX [Concomitant]
     Indication: CEREBROVASCULAR ACCIDENT PROPHYLAXIS
     Route: 048
  5. ISOSORBIDE [Concomitant]
     Indication: CARDIAC DISORDER
     Route: 048
  6. LOVASTATIN [Concomitant]
     Indication: BLOOD CHOLESTEROL INCREASED
     Dosage: 40MG
     Route: 048
  7. JANUVIA [Concomitant]
     Indication: DIABETES MELLITUS
     Route: 048
  8. FUROSEMIDE [Concomitant]
     Indication: HYPERTENSION
     Dosage: 80MG
     Route: 048

REACTIONS (4)
  - ERYTHEMA [None]
  - FATIGUE [None]
  - INCORRECT DOSE ADMINISTERED [None]
  - VOMITING [None]
